FAERS Safety Report 21154077 (Version 7)
Quarter: 2023Q2

REPORT INFORMATION
  Report Type: Report from Study
  Country: MX (occurrence: MX)
  Receive Date: 20220801
  Receipt Date: 20230629
  Transmission Date: 20230722
  Serious: Yes (Other)
  Sender: FDA-Public Use
  Company Number: MX-NOVARTISPH-NVSC2022MX172817

PATIENT
  Age: 93 Year
  Sex: Female

DRUGS (16)
  1. GLYCOPYRRONIUM\INDACATEROL [Suspect]
     Active Substance: GLYCOPYRRONIUM\INDACATEROL
     Indication: Antitussive therapy
     Dosage: 1 DOSAGE FORM, QD
     Dates: start: 20220611, end: 202208
  2. GLYCOPYRRONIUM\INDACATEROL [Suspect]
     Active Substance: GLYCOPYRRONIUM\INDACATEROL
     Indication: Cough
     Dosage: 1/1 DOSAGE FORM, QD
  3. GLYCOPYRRONIUM\INDACATEROL [Suspect]
     Active Substance: GLYCOPYRRONIUM\INDACATEROL
     Indication: Lung disorder
     Dosage: 1 DOSAGE FORM, QD
     Dates: start: 202206
  4. GLYCOPYRRONIUM\INDACATEROL [Suspect]
     Active Substance: GLYCOPYRRONIUM\INDACATEROL
     Indication: Pulmonary fibrosis
     Dosage: 1 DOSAGE FORM
     Route: 065
  5. HYDROCHLOROTHIAZIDE [Concomitant]
     Active Substance: HYDROCHLOROTHIAZIDE
     Indication: Cardiac disorder
     Dosage: 0.5 DOSAGE FORM, QD (BY MOUTH)
     Route: 048
     Dates: start: 202109
  6. HYDROCHLOROTHIAZIDE [Concomitant]
     Active Substance: HYDROCHLOROTHIAZIDE
     Indication: Hypertension
     Dosage: 0.5 DOSAGE FORM, QD(BETWEEN THE 11-FEB-2022 AND THE 17-FEB-2022)
     Route: 048
  7. HYDROCHLOROTHIAZIDE [Concomitant]
     Active Substance: HYDROCHLOROTHIAZIDE
     Dosage: 0.5 DOSAGE FORM, QD
     Route: 048
     Dates: start: 202202
  8. DIGOXIN [Concomitant]
     Active Substance: DIGOXIN
     Indication: Cardiac disorder
     Dosage: 0.5 DOSAGE FORM(ON MONDAYS, WEDNESDAYS AND FRIDAYS)
     Route: 048
     Dates: start: 202202
  9. DIGOXIN [Concomitant]
     Active Substance: DIGOXIN
     Indication: Arrhythmia
  10. SENSEMOC [Concomitant]
     Indication: Secretion discharge
     Dosage: 1 DOSAGE FORM, QD (BY MOUTH)
     Route: 048
     Dates: start: 202109
  11. SENSEMOC [Concomitant]
     Dosage: 1 DOSAGE FORM, QD
     Route: 048
     Dates: start: 2022
  12. ITRACONAZOLE [Concomitant]
     Active Substance: ITRACONAZOLE
     Indication: Fungal infection
     Dosage: 1 DOSAGE FORM, QD (BY MOUTH)
     Route: 048
     Dates: start: 20211213
  13. ITRACONAZOLE [Concomitant]
     Active Substance: ITRACONAZOLE
     Dosage: 10 MG, QD, EVERY 3RD DAY(MONDAY, WEDNESDAY, FRIDAY)
     Route: 048
     Dates: start: 202010
  14. OXYGEN [Concomitant]
     Active Substance: OXYGEN
     Indication: Product used for unknown indication
     Dosage: 24 HOURS 2 DAYS, 2 LITERS BY MINUTE
     Route: 065
  15. VALVULAN [Concomitant]
     Indication: Product used for unknown indication
     Dosage: 0.5 DOSAGE FORM (EVERY THIRD DAY, MONDAY, WEDNESDAY AND FRIDAY (AS REFERRED BY THE REPORTER)), (BY M
     Route: 048
     Dates: start: 202202
  16. LOSARTAN [Concomitant]
     Active Substance: LOSARTAN
     Indication: Hypertension
     Dosage: 1 DOSAGE FORM, QD (IN THE MORNING)
     Route: 048
     Dates: start: 202202

REACTIONS (11)
  - Cough [Not Recovered/Not Resolved]
  - Tooth fracture [Unknown]
  - Loose tooth [Unknown]
  - Drug ineffective [Recovered/Resolved]
  - Choking sensation [Unknown]
  - Pruritus [Recovering/Resolving]
  - Fungal skin infection [Recovering/Resolving]
  - Musculoskeletal discomfort [Not Recovered/Not Resolved]
  - Muscular dystrophy [Unknown]
  - Product use in unapproved indication [Unknown]
  - Off label use [Recovered/Resolved]

NARRATIVE: CASE EVENT DATE: 20210303
